FAERS Safety Report 12722152 (Version 2)
Quarter: 2016Q3

REPORT INFORMATION
  Report Type: Spontaneous
  Country: GB (occurrence: GB)
  Receive Date: 20160907
  Receipt Date: 20160921
  Transmission Date: 20161109
  Serious: Yes (Other)
  Sender: FDA-Public Use
  Company Number: GB-BAYER-2016-171313

PATIENT
  Sex: Male

DRUGS (1)
  1. CIPROFLOXACIN MONOHYDROCHLORIDE [Suspect]
     Active Substance: CIPROFLOXACIN
     Dosage: UNK

REACTIONS (7)
  - Mental fatigue [None]
  - Mental status changes [None]
  - Insomnia [None]
  - Depression [None]
  - Neuropathy peripheral [None]
  - Tendon disorder [None]
  - Hallucination [None]
